FAERS Safety Report 16780994 (Version 1)
Quarter: 2019Q4

REPORT INFORMATION
  Report Type: Spontaneous
  Country: US (occurrence: US)
  Receive Date: 20190906
  Receipt Date: 20190906
  Transmission Date: 20200122
  Serious: Yes (Death, Other)
  Sender: FDA-Public Use
  Company Number: None

PATIENT
  Age: 27 Year
  Sex: Female
  Weight: 72 kg

DRUGS (4)
  1. AMITRIPTYLINE [Concomitant]
     Active Substance: AMITRIPTYLINE
  2. MAXALT [Concomitant]
     Active Substance: RIZATRIPTAN BENZOATE
  3. AIMOVIG [Suspect]
     Active Substance: ERENUMAB-AOOE
     Indication: MIGRAINE PROPHYLAXIS
     Dosage: ?          QUANTITY:1 INJECTION(S);OTHER FREQUENCY:ONE A MONTH;?
     Route: 030
     Dates: start: 20190901, end: 20190906
  4. TYLENOL [Concomitant]
     Active Substance: ACETAMINOPHEN

REACTIONS (4)
  - Migraine [None]
  - Drug ineffective [None]
  - Vision blurred [None]
  - Vomiting [None]

NARRATIVE: CASE EVENT DATE: 20190905
